FAERS Safety Report 7662782-5 (Version None)
Quarter: 2011Q3

REPORT INFORMATION
  Report Type: 
  Country: None (occurrence: None)
  Receive Date: 20110805
  Receipt Date: 20100827
  Transmission Date: 20111222
  Serious: No
  Sender: FDA-Public Use
  Company Number: US-ABBOTT-10P-163-0666492-00

PATIENT
  Sex: Female
  Weight: 77.18 kg

DRUGS (4)
  1. NIASPAN [Suspect]
     Indication: DYSLIPIDAEMIA
     Dosage: AT BEDTIME
     Route: 048
     Dates: start: 20100824
  2. PREVACID [Concomitant]
     Indication: PRODUCT USED FOR UNKNOWN INDICATION
     Dosage: IN THE MORNING
  3. CITALOPRAM HYDROBROMIDE [Concomitant]
     Indication: PRODUCT USED FOR UNKNOWN INDICATION
     Dosage: 20MG, 1/2 AT BEDTIME
     Route: 048
  4. SYNTHROID [Concomitant]
     Indication: PRODUCT USED FOR UNKNOWN INDICATION
     Dosage: IN THE MORNING
     Route: 048

REACTIONS (2)
  - FLUSHING [None]
  - FAECES DISCOLOURED [None]
